FAERS Safety Report 11630660 (Version 1)
Quarter: 2015Q4

REPORT INFORMATION
  Report Type: Spontaneous
  Country: US (occurrence: US)
  Receive Date: 20151014
  Receipt Date: 20151014
  Transmission Date: 20160304
  Serious: No
  Sender: FDA-Public Use
  Company Number: GXBR2015US002029

PATIENT
  Age: 47 Year
  Sex: Male
  Weight: 97.51 kg

DRUGS (3)
  1. DESIPRAMINE HCL TABLETS USP [Suspect]
     Active Substance: DESIPRAMINE HYDROCHLORIDE
     Dosage: 30 MG, QD
     Route: 048
  2. DEPAKOTE [Concomitant]
     Active Substance: DIVALPROEX SODIUM
     Indication: BIPOLAR DISORDER
     Dosage: UNK DF, UNK
     Route: 048
     Dates: start: 1991
  3. DESIPRAMINE HCL TABLETS USP [Suspect]
     Active Substance: DESIPRAMINE HYDROCHLORIDE
     Indication: ATTENTION DEFICIT/HYPERACTIVITY DISORDER
     Dosage: 10 MG,
     Route: 048
     Dates: start: 1991

REACTIONS (6)
  - Memory impairment [None]
  - Impaired driving ability [Recovering/Resolving]
  - Drug ineffective [Recovering/Resolving]
  - Memory impairment [Recovering/Resolving]
  - Depressed mood [Recovering/Resolving]
  - Disturbance in attention [Recovering/Resolving]

NARRATIVE: CASE EVENT DATE: 201508
